FAERS Safety Report 15997247 (Version 2)
Quarter: 2019Q1

REPORT INFORMATION
  Report Type: Report from Study
  Country: JP (occurrence: JP)
  Receive Date: 20190222
  Receipt Date: 20190312
  Transmission Date: 20190418
  Serious: Yes (Hospitalization, Other)
  Sender: FDA-Public Use
  Company Number: JP-BRISTOL-MYERS SQUIBB COMPANY-BMS-2019-016985

PATIENT
  Age: 69 Year
  Sex: Male
  Weight: 63.4 kg

DRUGS (8)
  1. HEPAACT [Concomitant]
     Indication: HYPOALBUMINAEMIA
     Dosage: 1 DF, Q8H
     Route: 048
     Dates: start: 20170927
  2. PIARLE [Concomitant]
     Indication: HYPERAMMONAEMIA
     Dosage: 20 ML, Q8H
     Route: 048
     Dates: start: 20181015
  3. GLUCONSAN K [Concomitant]
     Active Substance: POTASSIUM GLUCONATE
     Indication: HYPOKALAEMIA
     Dosage: 1 GRAM, Q12H
     Route: 048
     Dates: start: 20190222
  4. NIVOLUMAB [Suspect]
     Active Substance: NIVOLUMAB
     Indication: HEPATOCELLULAR CARCINOMA
     Dosage: 240 MG, Q2WK
     Route: 042
     Dates: start: 20180827
  5. BESOFTEN [Concomitant]
     Active Substance: PENTOSAN POLYSULFATE SODIUM
     Indication: PALMAR-PLANTAR ERYTHRODYSAESTHESIA SYNDROME
     Dosage: 15 MG, EVERYDAY
     Route: 061
     Dates: start: 20181105
  6. DORAL [Concomitant]
     Active Substance: QUAZEPAM
     Indication: INSOMNIA
     Dosage: 15 MG, EVERYDAY
     Route: 048
     Dates: start: 20190115
  7. LENVATINIB [Suspect]
     Active Substance: LENVATINIB
     Indication: HEPATOCELLULAR CARCINOMA
     Dosage: 4 MG, UNK EVERYDAY
     Route: 065
     Dates: start: 20180827
  8. MYSER                              /00115501/ [Concomitant]
     Active Substance: CYCLOSERINE
     Indication: PALMAR-PLANTAR ERYTHRODYSAESTHESIA SYNDROME
     Dosage: 15 MG, EVERYDAY
     Route: 061
     Dates: start: 20181105

REACTIONS (2)
  - Hypopituitarism [Recovered/Resolved]
  - Ligament sprain [Not Recovered/Not Resolved]

NARRATIVE: CASE EVENT DATE: 20190212
